FAERS Safety Report 8281121-2 (Version None)
Quarter: 2012Q2

REPORT INFORMATION
  Report Type: 
  Country: None (occurrence: None)
  Receive Date: 20120413
  Receipt Date: 20120404
  Transmission Date: 20120825
  Serious: Yes (Hospitalization)
  Sender: FDA-Public Use
  Company Number: DE-BIOGENIDEC-2012BI012012

PATIENT
  Sex: Male

DRUGS (3)
  1. TYSABRI [Suspect]
     Indication: MULTIPLE SCLEROSIS
     Route: 042
     Dates: start: 20081110
  2. BENZODIAZEPINE [Concomitant]
  3. ANTIDEPRESSANT (NOS) [Concomitant]

REACTIONS (2)
  - PROSTATITIS [None]
  - URINARY TRACT INFECTION [None]
